FAERS Safety Report 8196429-9 (Version None)
Quarter: 2012Q1

REPORT INFORMATION
  Report Type: 
  Country: None (occurrence: None)
  Receive Date: 20120309
  Receipt Date: 20120306
  Transmission Date: 20120608
  Serious: Yes (Other)
  Sender: FDA-Public Use
  Company Number: US-PFIZER INC-2012060942

PATIENT

DRUGS (1)
  1. PROTONIX [Suspect]
     Dosage: UNK

REACTIONS (6)
  - CHEST PAIN [None]
  - BLOOD URINE PRESENT [None]
  - THROMBOSIS [None]
  - LOWER LIMB FRACTURE [None]
  - RENAL CYST [None]
  - HEADACHE [None]
